FAERS Safety Report 18129735 (Version 1)
Quarter: 2020Q3

REPORT INFORMATION
  Report Type: Spontaneous
  Country: US (occurrence: US)
  Receive Date: 20200810
  Receipt Date: 20200810
  Transmission Date: 20201103
  Serious: No
  Sender: FDA-Public Use
  Company Number: US-PERRIGO-19US015188

PATIENT
  Age: 70 Year
  Sex: Male
  Weight: 102.04 kg

DRUGS (5)
  1. LORATADINE. [Suspect]
     Active Substance: LORATADINE
     Indication: RHINORRHOEA
  2. LORATADINE. [Suspect]
     Active Substance: LORATADINE
     Indication: LACRIMATION INCREASED
  3. LORATADINE. [Suspect]
     Active Substance: LORATADINE
     Indication: LOWER RESPIRATORY TRACT INFECTION
     Dosage: 10 MG, SINGLE
     Route: 048
     Dates: start: 20191205, end: 20191205
  4. LORATADINE. [Suspect]
     Active Substance: LORATADINE
     Indication: THROAT IRRITATION
  5. LORATADINE. [Suspect]
     Active Substance: LORATADINE
     Indication: NASOPHARYNGITIS
     Dosage: 10 MG, SINGLE
     Route: 048
     Dates: start: 201912, end: 201912

REACTIONS (1)
  - Drug ineffective for unapproved indication [Unknown]

NARRATIVE: CASE EVENT DATE: 201912
